FAERS Safety Report 11597231 (Version 2)
Quarter: 2017Q1

REPORT INFORMATION
  Report Type: Spontaneous
  Country: US (occurrence: US)
  Receive Date: 20151006
  Receipt Date: 20170124
  Transmission Date: 20170428
  Serious: Yes (Other)
  Sender: FDA-Public Use
  Company Number: US-SA-2015SA149172

PATIENT
  Age: 63 Year
  Sex: Female

DRUGS (2)
  1. LANTUS SOLOSTAR [Suspect]
     Active Substance: INSULIN GLARGINE
     Indication: TYPE 2 DIABETES MELLITUS
     Dosage: 40 AM/ 30 PM
     Route: 065
  2. SOLOSTAR [Concomitant]
     Active Substance: DEVICE

REACTIONS (3)
  - Cerebrovascular accident [Unknown]
  - Product use issue [Unknown]
  - Aphasia [Unknown]

NARRATIVE: CASE EVENT DATE: 2015
